FAERS Safety Report 14316089 (Version 1)
Quarter: 2017Q4

REPORT INFORMATION
  Report Type: Spontaneous
  Country: NL (occurrence: NL)
  Receive Date: 20171222
  Receipt Date: 20171222
  Transmission Date: 20180321
  Serious: Yes (Other)
  Sender: FDA-Public Use
  Company Number: NL-ELI_LILLY_AND_COMPANY-NL201712009875

PATIENT
  Age: 68 Year
  Sex: Male

DRUGS (6)
  1. DEPOCYT [Suspect]
     Active Substance: CYTARABINE
     Indication: SQUAMOUS CELL CARCINOMA
     Dosage: 50 MG, 2/M
     Route: 065
  2. DEPOCYT [Suspect]
     Active Substance: CYTARABINE
     Indication: SQUAMOUS CELL CARCINOMA
  3. ERBITUX [Suspect]
     Active Substance: CETUXIMAB
     Dosage: 250 MG/M2, WEEKLY (1/W)
     Route: 065
  4. ERBITUX [Suspect]
     Active Substance: CETUXIMAB
     Indication: PRODUCT USED FOR UNKNOWN INDICATION
     Dosage: 400 MG/M2, UNKNOWN
     Route: 065
  5. METHOTREXATE. [Suspect]
     Active Substance: METHOTREXATE
     Dosage: UNK UNK, MONTHLY (1/M)
     Route: 065
  6. METHOTREXATE. [Suspect]
     Active Substance: METHOTREXATE
     Indication: SQUAMOUS CELL CARCINOMA
     Dosage: 12 MG, UNK
     Route: 065

REACTIONS (5)
  - Dehydration [Unknown]
  - Rash [Unknown]
  - Off label use [Unknown]
  - Meningitis chemical [Unknown]
  - Neoplasm progression [Unknown]
